FAERS Safety Report 5873006-3 (Version None)
Quarter: 2008Q3

REPORT INFORMATION
  Report Type: 
  Country: None (occurrence: None)
  Receive Date: 20080905
  Receipt Date: 20080818
  Transmission Date: 20090109
  Serious: Yes (Other)
  Sender: FDA-Public Use
  Company Number: JP-PFIZER INC-2008072355

PATIENT
  Sex: Male

DRUGS (6)
  1. ZITHROMAX [Suspect]
  2. NORVASC [Concomitant]
  3. IMIDAPRIL HYDROCHLORIDE [Concomitant]
  4. TRITEREN [Concomitant]
  5. ACTOS [Concomitant]
  6. ALL OTHER THERAPEUTIC PRODUCTS [Concomitant]

REACTIONS (1)
  - BLOOD PRESSURE INCREASED [None]
